FAERS Safety Report 5319357-2 (Version None)
Quarter: 2007Q2

REPORT INFORMATION
  Report Type: 
  Country: None (occurrence: None)
  Receive Date: 20070508
  Receipt Date: 20070503
  Transmission Date: 20071010
  Serious: Yes (Hospitalization)
  Sender: FDA-Public Use
  Company Number: US-ELI_LILLY_AND_COMPANY-US200705000963

PATIENT
  Sex: Male

DRUGS (4)
  1. HUMULIN 70/30 [Suspect]
     Indication: DIABETES MELLITUS NON-INSULIN-DEPENDENT
     Dosage: 30 U, 2/D
     Dates: start: 19900101
  2. HUMULIN 70/30 [Suspect]
     Dosage: 35 U, EACH MORNING
  3. HUMULIN 70/30 [Suspect]
     Dosage: 30 U, EACH EVENING
  4. HUMULIN 70/30 [Suspect]
     Dosage: 35 U, 2/D

REACTIONS (7)
  - APPENDICECTOMY [None]
  - BLOOD GLUCOSE INCREASED [None]
  - CATARACT [None]
  - INFLUENZA [None]
  - NEUROPATHY [None]
  - NOCTURIA [None]
  - WEIGHT DECREASED [None]
